FAERS Safety Report 13180843 (Version 1)
Quarter: 2017Q1

REPORT INFORMATION
  Report Type: Spontaneous
  Country: US (occurrence: US)
  Receive Date: 20170202
  Receipt Date: 20170202
  Transmission Date: 20170428
  Serious: No
  Sender: FDA-Public Use
  Company Number: US-SMITH AND NEPHEW, INC-2016SMT00509

PATIENT
  Age: 70 Year
  Sex: Female
  Weight: 88.89 kg

DRUGS (14)
  1. VITAMIN D2 [Concomitant]
     Active Substance: ERGOCALCIFEROL
     Dosage: 50000 IU, 1X/WEEK
  2. AMLODIPINE [Concomitant]
     Active Substance: AMLODIPINE BESYLATE
     Dosage: 10 MG, 1X/DAY
  3. DIOVAN [Concomitant]
     Active Substance: VALSARTAN
     Dosage: 320 MG, 1X/DAY
  4. UNSPECIFIED HUMULIN INSULIN [Concomitant]
     Dosage: 10 U, 1X/DAY
  5. SIMBRINZA [Concomitant]
     Active Substance: BRIMONIDINE TARTRATE\BRINZOLAMIDE
     Dosage: 2 GTT, 2X/DAY
     Route: 047
  6. OMEPRAZOLE. [Concomitant]
     Active Substance: OMEPRAZOLE
     Dosage: 20 MG, 1X/DAY
  7. ASPIRIN. [Concomitant]
     Active Substance: ASPIRIN
     Dosage: 81 MG, 1X/DAY
  8. UNSPECIFIED HUMULIN INSULIN [Concomitant]
     Dosage: 40 U, 1X/DAY
  9. TRAVOPROST [Concomitant]
     Active Substance: TRAVOPROST
     Dosage: 2 GTT, 1X/DAY
     Route: 047
  10. CALCIUM [Concomitant]
     Active Substance: CALCIUM
     Dosage: 667 MG, 2X/DAY
  11. FUROSEMIDE. [Concomitant]
     Active Substance: FUROSEMIDE
     Dosage: 80 MG, 4X/WEEK
  12. LABETALOL [Concomitant]
     Active Substance: LABETALOL\LABETALOL HYDROCHLORIDE
     Dosage: 100 MG, 2X/DAY
  13. REGRANEX [Suspect]
     Active Substance: BECAPLERMIN
     Indication: TOE AMPUTATION
     Dosage: UNK UNK, 1X/DAY
     Route: 061
     Dates: start: 201605, end: 20160519
  14. SIMVASTATIN. [Concomitant]
     Active Substance: SIMVASTATIN
     Dosage: 10 MG, 1X/DAY

REACTIONS (1)
  - Infection [Unknown]

NARRATIVE: CASE EVENT DATE: 20160519
